FAERS Safety Report 15837136 (Version 1)
Quarter: 2019Q1

REPORT INFORMATION
  Report Type: Spontaneous
  Country: US (occurrence: US)
  Receive Date: 20190117
  Receipt Date: 20190117
  Transmission Date: 20190417
  Serious: Yes (Other)
  Sender: FDA-Public Use
  Company Number: US-TEVA-2019-US-997314

PATIENT
  Age: 69 Year
  Sex: Male

DRUGS (6)
  1. BUSPIRONE [Interacting]
     Active Substance: BUSPIRONE HYDROCHLORIDE
     Indication: MAJOR DEPRESSION
     Dosage: 60 MILLIGRAM DAILY;
     Route: 065
  2. BUPROPION. [Interacting]
     Active Substance: BUPROPION
     Indication: MAJOR DEPRESSION
     Dosage: 300 MILLIGRAM DAILY; SUSTAINED RELEASE
     Route: 065
  3. ZOLPIDEM [Concomitant]
     Active Substance: ZOLPIDEM\ZOLPIDEM TARTRATE
     Indication: INSOMNIA
     Dosage: EVERY DAY AT BEDTIME
     Route: 065
  4. URIBEL [Interacting]
     Active Substance: HYOSCYAMINE SULFATE\METHENAMINE\METHYLENE BLUE\PHENYL SALICYLATE\SODIUM PHOSPHATE, MONOBASIC, MONOHYDRATE
     Indication: TRANSITIONAL CELL CARCINOMA
     Route: 048
  5. GABAPENTIN. [Concomitant]
     Active Substance: GABAPENTIN
     Indication: MENIERE^S DISEASE
     Dosage: 300 MILLIGRAM DAILY;
     Route: 065
  6. VENLAFAXINE [Suspect]
     Active Substance: VENLAFAXINE HYDROCHLORIDE
     Indication: MAJOR DEPRESSION
     Dosage: 75 MILLIGRAM DAILY; IMMEDIATE RELEASE
     Route: 065

REACTIONS (2)
  - Drug interaction [Recovered/Resolved]
  - Serotonin syndrome [Recovered/Resolved]
